FAERS Safety Report 8360756-2 (Version None)
Quarter: 2012Q2

REPORT INFORMATION
  Report Type: 
  Country: None (occurrence: None)
  Receive Date: 20120515
  Receipt Date: 20120504
  Transmission Date: 20120825
  Serious: Yes (Hospitalization)
  Sender: FDA-Public Use
  Company Number: FR-FRI-1000030478

PATIENT
  Sex: Female

DRUGS (4)
  1. RISPERDAL [Suspect]
     Indication: DEPRESSION
     Dosage: 2 MG
     Route: 048
     Dates: start: 20120214, end: 20120315
  2. MIRTAZAPINE [Suspect]
     Indication: DEPRESSION
     Dosage: 15 MG
     Route: 048
     Dates: start: 20120305, end: 20120315
  3. ESCITALOPRAM [Suspect]
     Indication: DEPRESSION
     Dosage: OVERDOSE OF 30 MG DAILY
     Route: 048
     Dates: start: 20120305
  4. LOVENOX [Concomitant]
     Indication: PHLEBITIS
     Dosage: 120 MG/1.26 ML DAILY
     Route: 058
     Dates: start: 20120108

REACTIONS (2)
  - NEUTROPENIA [None]
  - OVERDOSE [None]
